FAERS Safety Report 24542325 (Version 1)
Quarter: 2024Q4

REPORT INFORMATION
  Report Type: Spontaneous
  Country: US (occurrence: US)
  Receive Date: 20241023
  Receipt Date: 20241023
  Transmission Date: 20250115
  Serious: No
  Sender: AMGEN
  Company Number: US-AMGEN-USASP2024209247

PATIENT
  Sex: Female

DRUGS (1)
  1. REPATHA [Suspect]
     Active Substance: EVOLOCUMAB
     Indication: Product used for unknown indication
     Dosage: 1 DOSAGE FORM, Q2WK
     Route: 065
     Dates: end: 20241018

REACTIONS (3)
  - Vision blurred [Recovered/Resolved]
  - Nausea [Recovered/Resolved]
  - Hypoacusis [Recovered/Resolved]
